FAERS Safety Report 9568634 (Version 2)
Quarter: 2013Q3

REPORT INFORMATION
  Report Type: Spontaneous
  Country: US (occurrence: US)
  Receive Date: 20130930
  Receipt Date: 20130930
  Transmission Date: 20140515
  Serious: No
  Sender: FDA-Public Use
  Company Number: US-AMGEN-USASP2013059328

PATIENT
  Age: 53 Year
  Sex: Female
  Weight: 57.6 kg

DRUGS (11)
  1. ENBREL [Suspect]
     Indication: PRODUCT USED FOR UNKNOWN INDICATION
     Dosage: 50 MG, QWK
     Route: 058
  2. XANAX [Concomitant]
     Dosage: 1 MG, UNK
  3. ZOLPIDEM [Concomitant]
     Dosage: 5 MG, UNK
  4. METHOTREXATE [Concomitant]
     Dosage: 2.5 MG, UNK
  5. VICODIN [Concomitant]
     Dosage: 5-300 MG, UNK
  6. HYDROCHLOROTH [Concomitant]
     Dosage: 50 MG, UNK
  7. ESTRADIOL [Concomitant]
     Dosage: 0.025 MG, UNK
  8. BIOTIN [Concomitant]
     Dosage: 5000 UNK, UNK
  9. SKIN HAIR NAILS [Concomitant]
     Dosage: UNK
  10. FOLIC ACID [Concomitant]
     Dosage: 20 MG, UNK
  11. PRENATABS FA [Concomitant]
     Dosage: UNK

REACTIONS (2)
  - Pain [Unknown]
  - Abnormal sensation in eye [Unknown]
